FAERS Safety Report 6406142-3 (Version None)
Quarter: 2009Q4

REPORT INFORMATION
  Report Type: 
  Country: None (occurrence: None)
  Receive Date: 20091016
  Receipt Date: 20091016
  Transmission Date: 20100525
  Serious: Yes (Death)
  Sender: FDA-Public Use
  Company Number: None

PATIENT
  Age: 38 Year
  Sex: Female
  Weight: 96.9 kg

DRUGS (1)
  1. YAZ [Suspect]
     Dosage: 1 TAB DAILY PO
     Route: 048

REACTIONS (6)
  - CAROTID ARTERY DISEASE [None]
  - CEREBRAL HYPOPERFUSION [None]
  - CEREBRAL INFARCTION [None]
  - CEREBROVASCULAR DISORDER [None]
  - FALL [None]
  - HEAD INJURY [None]
